FAERS Safety Report 23314808 (Version 1)
Quarter: 2023Q4

REPORT INFORMATION
  Report Type: Spontaneous
  Country: US (occurrence: US)
  Receive Date: 20231219
  Receipt Date: 20231219
  Transmission Date: 20240109
  Serious: Yes (Other)
  Sender: FDA-Public Use
  Company Number: US-MYLANLABS-2020M1047670

PATIENT
  Age: 12 Year
  Sex: Female

DRUGS (3)
  1. QUETIAPINE [Suspect]
     Active Substance: QUETIAPINE
     Indication: Mood swings
     Dosage: 225 MILLIGRAM QC, 100 MG IN MORNING AND 125 MG IN EVENING
     Route: 065
  2. QUETIAPINE [Suspect]
     Active Substance: QUETIAPINE
     Dosage: DOSE WAS INCREASED THREE MONTH BEFORE (DOSE NOT MENTIONED), LATER CHANGED TO PREVIOUS DOSE
     Route: 065
  3. FLUOXETINE [Concomitant]
     Active Substance: FLUOXETINE HYDROCHLORIDE
     Indication: Product used for unknown indication
     Dosage: 75 MILLIGRAM, QD
     Route: 065

REACTIONS (3)
  - Hypothyroidism [Recovered/Resolved]
  - Weight increased [Unknown]
  - Off label use [Unknown]
